FAERS Safety Report 8447576-5 (Version None)
Quarter: 2012Q2

REPORT INFORMATION
  Report Type: 
  Country: None (occurrence: None)
  Receive Date: 20120619
  Receipt Date: 20120618
  Transmission Date: 20120825
  Serious: Yes (Life-Threatening, Hospitalization)
  Sender: FDA-Public Use
  Company Number: US-B.I. PHARMACEUTICALS,INC./RIDGEFIELD-2011-BP-25538BP

PATIENT
  Sex: Male

DRUGS (14)
  1. RAMIPRIL [Concomitant]
     Dosage: 2.5 MG
  2. SIMVASTATIN [Concomitant]
     Dosage: 40 MG
  3. METFORMIN HCL [Concomitant]
     Dosage: 2000 MG
  4. ASPIRIN [Concomitant]
     Dosage: 81 MG
     Route: 048
  5. NOVOLOG [Concomitant]
  6. TRADJENTA [Suspect]
     Indication: TYPE 2 DIABETES MELLITUS
     Dates: start: 20111012
  7. SYMBICORT [Concomitant]
     Dosage: 4 PUF
     Route: 055
  8. NOVOLOG [Concomitant]
  9. GLIPIZIDE [Concomitant]
     Dosage: 81 MG
  10. SPIRIVA [Concomitant]
     Dosage: 18 MCG
     Route: 055
  11. MULTI-VITAMIN [Concomitant]
     Route: 048
  12. METHYLPREDNISOLONE SODIUM SUCCINATE [Suspect]
     Indication: ADVERSE DRUG REACTION
     Dosage: 120 MG
     Route: 042
     Dates: start: 20111001
  13. PROAIR HFA INH [Concomitant]
     Route: 055
  14. NOVOLOG [Concomitant]

REACTIONS (3)
  - ANAEMIA [None]
  - DERMATITIS ALLERGIC [None]
  - BLOOD GLUCOSE INCREASED [None]
